FAERS Safety Report 8163608-6 (Version None)
Quarter: 2012Q1

REPORT INFORMATION
  Report Type: 
  Country: None (occurrence: None)
  Receive Date: 20120224
  Receipt Date: 20120222
  Transmission Date: 20120608
  Serious: Yes (Hospitalization)
  Sender: FDA-Public Use
  Company Number: IT-PFIZER INC-2012029095

PATIENT
  Age: 18 Year
  Sex: Female

DRUGS (1)
  1. XANAX [Suspect]
     Dosage: 20 TABLETS
     Route: 048
     Dates: start: 20120129, end: 20120129

REACTIONS (3)
  - HEADACHE [None]
  - ABDOMINAL PAIN UPPER [None]
  - INTENTIONAL OVERDOSE [None]
